FAERS Safety Report 6125613-0 (Version None)
Quarter: 2009Q1

REPORT INFORMATION
  Report Type: 
  Country: None (occurrence: None)
  Receive Date: 20090320
  Receipt Date: 20090309
  Transmission Date: 20090719
  Serious: Yes (Other)
  Sender: FDA-Public Use
  Company Number: US-ROCHE-606388

PATIENT
  Sex: Female

DRUGS (8)
  1. BONIVA [Suspect]
     Indication: OSTEOPOROSIS
     Route: 048
     Dates: start: 20070101
  2. LEXAPRO [Concomitant]
  3. POTASSIUM CHLORIDE [Concomitant]
  4. NEURONTIN [Concomitant]
  5. CLONOPIN [Concomitant]
  6. NEXIUM [Concomitant]
  7. CARAFATE [Concomitant]
  8. ROBINUL [Concomitant]
     Dosage: DRUG REPORTED AS: ROBINUL FORTE.

REACTIONS (10)
  - ABDOMINAL DISCOMFORT [None]
  - ARTHRALGIA [None]
  - FALL [None]
  - FRACTURE DELAYED UNION [None]
  - GINGIVAL RECESSION [None]
  - JOINT SWELLING [None]
  - PELVIC FRACTURE [None]
  - PETIT MAL EPILEPSY [None]
  - RIB FRACTURE [None]
  - SINUSITIS [None]
